FAERS Safety Report 5292278-X (Version None)
Quarter: 2007Q2

REPORT INFORMATION
  Report Type: 
  Country: None (occurrence: None)
  Receive Date: 20070403
  Receipt Date: 20070320
  Transmission Date: 20071010
  Serious: Yes (Other)
  Sender: FDA-Public Use
  Company Number: B0464231A

PATIENT

DRUGS (4)
  1. RETROVIR [Suspect]
     Indication: ANTIVIRAL PROPHYLAXIS
     Dosage: TRANSPLACENTARY
     Route: 064
  2. EPIVIR [Suspect]
     Indication: ANTIVIRAL PROPHYLAXIS
     Dosage: TRANSPLACENTARY
     Route: 064
  3. NEVIRAPINE [Suspect]
     Indication: ANTIVIRAL PROPHYLAXIS
     Dosage: TRANSPLACENTARY
     Route: 064
  4. QUININE SULFATE [Suspect]
     Indication: PLASMODIUM FALCIPARUM INFECTION
     Dosage: TRANSPLACENTARY
     Route: 064

REACTIONS (6)
  - DRUG EXPOSURE DURING PREGNANCY [None]
  - FAILURE TO THRIVE [None]
  - HEPATOSPLENOMEGALY [None]
  - HUMAN IMMUNODEFICIENCY VIRUS TRANSMISSION [None]
  - MATERNAL CONDITION AFFECTING FOETUS [None]
  - VERTICAL INFECTION TRANSMISSION [None]
